FAERS Safety Report 4772995-8 (Version None)
Quarter: 2005Q3

REPORT INFORMATION
  Report Type: 
  Country: None (occurrence: None)
  Receive Date: 20050916
  Receipt Date: 20050908
  Transmission Date: 20060218
  Serious: Yes (Hospitalization, Other)
  Sender: FDA-Public Use
  Company Number: 2004022539

PATIENT
  Age: 58 Year
  Sex: Female
  Weight: 72 kg

DRUGS (6)
  1. AMLODIPINE [Suspect]
     Indication: HYPERTENSION
     Dosage: 5 MG 1 IN 1 D, ORAL
     Route: 048
     Dates: start: 20040319, end: 20040101
  2. APROVEL (IRBESARTAN) [Suspect]
     Indication: HYPERTENSION
     Dosage: 1 IN 1 D, ORAL
     Route: 048
     Dates: start: 20031202, end: 20040201
  3. FRACTAL (FLUVASTATIN) [Concomitant]
  4. GLUCOPHAGE [Concomitant]
  5. PULMICORT [Concomitant]
  6. FORADIL [Concomitant]

REACTIONS (1)
  - ANGIONEUROTIC OEDEMA [None]
